FAERS Safety Report 4863578-X (Version None)
Quarter: 2005Q4

REPORT INFORMATION
  Report Type: 
  Country: None (occurrence: None)
  Receive Date: 20051222
  Receipt Date: 20050506
  Transmission Date: 20060501
  Serious: No
  Sender: FDA-Public Use
  Company Number: US-GLAXOSMITHKLINE-A0557542A

PATIENT
  Age: 51 Year
  Sex: Female

DRUGS (5)
  1. FLONASE [Suspect]
     Route: 045
     Dates: start: 19950101, end: 20050201
  2. GUAIFENESIN [Concomitant]
  3. LORATADINE [Concomitant]
  4. ESTRATEST [Concomitant]
  5. ZOMIG [Concomitant]

REACTIONS (1)
  - EPISTAXIS [None]
